FAERS Safety Report 19230874 (Version 1)
Quarter: 2021Q2

REPORT INFORMATION
  Report Type: Report from Study
  Country: CA (occurrence: CA)
  Receive Date: 20210507
  Receipt Date: 20210507
  Transmission Date: 20210717
  Serious: Yes (Hospitalization)
  Sender: FDA-Public Use
  Company Number: CA-JNJFOC-20210502941

PATIENT
  Age: 17 Year
  Sex: Male
  Weight: 89 kg

DRUGS (1)
  1. REMICADE [Suspect]
     Active Substance: INFLIXIMAB
     Indication: CROHN^S DISEASE
     Route: 042

REACTIONS (3)
  - Vomiting [Recovering/Resolving]
  - Flatulence [Recovering/Resolving]
  - Gastrointestinal mucosa hyperaemia [Recovering/Resolving]

NARRATIVE: CASE EVENT DATE: 20210413
